FAERS Safety Report 9323701 (Version 2)
Quarter: 2013Q2

REPORT INFORMATION
  Report Type: Spontaneous
  Country: DE (occurrence: DE)
  Receive Date: 20130603
  Receipt Date: 20130621
  Transmission Date: 20140414
  Serious: Yes (Hospitalization, Other)
  Sender: FDA-Public Use
  Company Number: PHHY2013DE033018

PATIENT
  Sex: Male

DRUGS (12)
  1. TASIGNA [Suspect]
     Indication: CHRONIC MYELOID LEUKAEMIA
     Dosage: 600 MG, DAILY
     Route: 048
     Dates: start: 20110928
  2. PROGRAF [Concomitant]
     Dosage: 1 MG
  3. PREDNISONE [Concomitant]
     Dosage: 5 MG, EVERY SECOND DAY
  4. CLARITHROMYCIN [Concomitant]
     Dosage: 500 MG, BID
  5. PANTAZOLE [Concomitant]
     Dosage: 20 MG, DAILY
  6. MAGNESIUM OXIDE [Concomitant]
  7. EUTHYROX [Concomitant]
     Dosage: 50 UG, DAILY
  8. CALCIMAGON-D3 [Concomitant]
  9. RAMIPRIL [Concomitant]
     Dosage: 2.5 MG, DAILY
  10. INSULIN [Concomitant]
  11. FENTANYL [Concomitant]
     Dosage: 25 UG, EVERY 3 DAYS
  12. NOVALGIN [Concomitant]

REACTIONS (1)
  - Peripheral arterial occlusive disease [Recovering/Resolving]
